FAERS Safety Report 24432908 (Version 2)
Quarter: 2024Q4

REPORT INFORMATION
  Report Type: Spontaneous
  Country: CN (occurrence: CN)
  Receive Date: 20241014
  Receipt Date: 20241024
  Transmission Date: 20250115
  Serious: Yes (Other)
  Sender: GUERBET
  Company Number: CN-GUERBET / FUNDTRIP PHARMACEUTICALS-CN-20240264

PATIENT
  Age: 60 Year
  Sex: Female

DRUGS (1)
  1. IOVERSOL [Suspect]
     Active Substance: IOVERSOL
     Indication: Angiogram
     Dosage: THROUGH THE PIG TAIL CATHETER IN THE SUBAORTIC ARCH ARTERY
     Route: 013
     Dates: start: 2023, end: 2023

REACTIONS (1)
  - Contrast encephalopathy [Recovering/Resolving]

NARRATIVE: CASE EVENT DATE: 20230101
